FAERS Safety Report 20852390 (Version 1)
Quarter: 2022Q2

REPORT INFORMATION
  Report Type: Spontaneous
  Country: FR (occurrence: FR)
  Receive Date: 20220520
  Receipt Date: 20220520
  Transmission Date: 20220721
  Serious: Yes (Other)
  Sender: FDA-Public Use
  Company Number: FR-AFSSAPS-CN20220712

PATIENT
  Age: 66 Year
  Sex: Male

DRUGS (7)
  1. PERINDOPRIL [Suspect]
     Active Substance: PERINDOPRIL
     Indication: Ischaemic heart disease prophylaxis
     Dosage: 2 MILLIGRAM, DAILY, PERINDOPRIL 2 MG/HOUR
     Route: 048
  2. PANTOPRAZOLE [Suspect]
     Active Substance: PANTOPRAZOLE
     Indication: Ischaemic heart disease prophylaxis
     Dosage: 20 MILLIGRAM, DAILY, PANTOPRAZOLE 20 MG/HOUR
     Route: 048
  3. BISOPROLOL [Suspect]
     Active Substance: BISOPROLOL
     Indication: Ischaemic heart disease prophylaxis
     Dosage: 5 MILLIGRAM, DAILY, BISOPROLOL 5 MG/HOUR
     Route: 048
  4. ATORVASTATIN [Suspect]
     Active Substance: ATORVASTATIN
     Indication: Ischaemic heart disease prophylaxis
     Dosage: 80 MILLIGRAM, DAILY, ATORVASTATIN 80 MG/HOUR
     Route: 048
  5. EZETIMIBE [Suspect]
     Active Substance: EZETIMIBE
     Indication: Ischaemic heart disease prophylaxis
     Dosage: 10 MILLIGRAM, DAILY, EZETIMIBE 10 MG/HOUR
     Route: 048
  6. AVANAFIL [Suspect]
     Active Substance: AVANAFIL
     Indication: Erectile dysfunction
     Dosage: 200 MILLIGRAM, SPEDRA (AVANAFIL) 200 MG CPR 1 SI BESOIN ; AS NECESSARY
     Route: 048
  7. KARDEGIC [Suspect]
     Active Substance: ASPIRIN DL-LYSINE
     Indication: Ischaemic heart disease prophylaxis
     Dosage: 75 MILLIGRAM, DAILY, KARDEGIC (ACIDE ACETYLSALICYLIQUE) 75 MG/HOUR
     Route: 048

REACTIONS (1)
  - Bladder cancer [Not Recovered/Not Resolved]

NARRATIVE: CASE EVENT DATE: 20220311
